FAERS Safety Report 5805929-5 (Version None)
Quarter: 2008Q3

REPORT INFORMATION
  Report Type: 
  Country: None (occurrence: None)
  Receive Date: 20080710
  Receipt Date: 20080703
  Transmission Date: 20090109
  Serious: Yes (Hospitalization)
  Sender: FDA-Public Use
  Company Number: IT-WYE-G01565508

PATIENT
  Sex: Male
  Weight: 89 kg

DRUGS (7)
  1. TEMSIROLIMUS [Suspect]
     Indication: RENAL CANCER METASTATIC
     Route: 042
     Dates: start: 20080429
  2. BISOPROLOL FUMARATE [Concomitant]
     Indication: HYPERTENSION
     Dosage: 1.25
     Dates: end: 20080518
  3. DEXAMETHASONE [Concomitant]
     Indication: BRAIN OEDEMA
     Dosage: NOT PROVIDED
     Dates: start: 20080417
  4. ZANEDIP [Suspect]
     Indication: HYPERTENSION
     Dosage: NOT PROVIDED
     Dates: end: 20080518
  5. NEXIUM [Concomitant]
     Indication: GASTRITIS
     Dosage: NOT PROVIDED
     Dates: start: 20080417
  6. CORDARONE [Suspect]
     Indication: ATRIAL FIBRILLATION
     Route: 048
  7. OLMESARTAN MEDOXOMIL [Concomitant]
     Indication: HYPERTENSION
     Dosage: 1 TABLET DAILY
     Dates: end: 20080518

REACTIONS (5)
  - HYPERGLYCAEMIA [None]
  - LEUKOPENIA [None]
  - PLATELET COUNT DECREASED [None]
  - PYREXIA [None]
  - UROSEPSIS [None]
